FAERS Safety Report 9731879 (Version 2)
Quarter: 2013Q4

REPORT INFORMATION
  Report Type: Spontaneous
  Country: FR (occurrence: FR)
  Receive Date: 20131204
  Receipt Date: 20131204
  Transmission Date: 20140711
  Serious: Yes (Death, Life-Threatening)
  Sender: FDA-Public Use
  Company Number: FR-BAYER-2013-119246

PATIENT
  Age: 84 Year
  Sex: Male

DRUGS (15)
  1. CIFLOX [Suspect]
     Indication: RESPIRATORY DISTRESS
     Dosage: UNK
     Dates: start: 20130818, end: 20130821
  2. MOPRALPRO 20MG [Suspect]
     Dosage: 20 MG, UNK
     Dates: end: 20130827
  3. INEXIUM [Suspect]
     Dosage: UNK
     Dates: end: 20130920
  4. OFLOCET [Suspect]
     Indication: COUGH
     Dosage: UNK
     Dates: start: 20130729, end: 20130812
  5. ROCEPHINE [Suspect]
     Indication: RESPIRATORY DISTRESS
     Dosage: UNK
     Dates: start: 20130818, end: 20130821
  6. TAZOCILLINE [Suspect]
     Dosage: UNK
     Dates: start: 20130821, end: 20130923
  7. RULID [Suspect]
     Dosage: UNK
     Dates: start: 20130821, end: 20130829
  8. CORDARONE [Suspect]
     Dosage: UNK
     Dates: start: 20130828, end: 20130923
  9. LASILIX [Suspect]
     Dosage: UNK
     Dates: start: 20130826, end: 20130927
  10. MONOTILDIEM [Concomitant]
  11. JOSIR [Concomitant]
  12. BILASTINE [Concomitant]
  13. SPIRIVA [Concomitant]
  14. PNEUMOREL [Concomitant]
  15. DEXERYL [CHLORPHENAM MAL,DEXTROMET HBR,GUAIF,PHENYLEPHR HCL] [Concomitant]

REACTIONS (5)
  - Agranulocytosis [Not Recovered/Not Resolved]
  - Septic shock [Not Recovered/Not Resolved]
  - Bone marrow failure [Not Recovered/Not Resolved]
  - Multi-organ failure [Fatal]
  - Death [Fatal]
